FAERS Safety Report 5835285-8 (Version None)
Quarter: 2008Q3

REPORT INFORMATION
  Report Type: 
  Country: None (occurrence: None)
  Receive Date: 20080804
  Receipt Date: 20080725
  Transmission Date: 20090109
  Serious: Yes (Disabling, Other)
  Sender: FDA-Public Use
  Company Number: CHNY2008DE02907

PATIENT
  Sex: Female

DRUGS (1)
  1. SCOPDERM TTS [Suspect]
     Dosage: TRANSDERMAL
     Route: 062

REACTIONS (2)
  - APHASIA [None]
  - DRUG INTOLERANCE [None]
